FAERS Safety Report 25089598 (Version 2)
Quarter: 2025Q2

REPORT INFORMATION
  Report Type: Spontaneous
  Country: JP (occurrence: JP)
  Receive Date: 20250318
  Receipt Date: 20250415
  Transmission Date: 20250716
  Serious: Yes (Death, Other)
  Sender: ALEXION PHARMACEUTICALS
  Company Number: JP-ASTRAZENECA-250026004_013020_P_1

PATIENT
  Age: 68 Year

DRUGS (1)
  1. OSIMERTINIB [Suspect]
     Active Substance: OSIMERTINIB
     Indication: Non-small cell lung cancer
     Dosage: 80 MILLIGRAM, QD

REACTIONS (1)
  - Sudden death [Fatal]
